FAERS Safety Report 7898223-2 (Version None)
Quarter: 2011Q4

REPORT INFORMATION
  Report Type: 
  Country: None (occurrence: None)
  Receive Date: 20111107
  Receipt Date: 20110405
  Transmission Date: 20120403
  Serious: Yes (Hospitalization)
  Sender: FDA-Public Use
  Company Number: US-GLAXOSMITHKLINE-A0921882A

PATIENT
  Age: 84 Year
  Sex: Male

DRUGS (1)
  1. AVANDAMET [Suspect]
     Indication: DIABETES MELLITUS
     Route: 048
     Dates: start: 20041201, end: 20081201

REACTIONS (12)
  - DYSARTHRIA [None]
  - DYSPHAGIA [None]
  - LACERATION [None]
  - PARAESTHESIA [None]
  - CHOKING [None]
  - SCAR [None]
  - DIZZINESS [None]
  - LOSS OF CONSCIOUSNESS [None]
  - FALL [None]
  - SOFT TISSUE INJURY [None]
  - VERTIGO [None]
  - PLASTIC SURGERY [None]
